FAERS Safety Report 25481919 (Version 1)
Quarter: 2025Q2

REPORT INFORMATION
  Report Type: Spontaneous
  Country: TH (occurrence: TH)
  Receive Date: 20250626
  Receipt Date: 20250626
  Transmission Date: 20250716
  Serious: Yes (Other)
  Sender: MERCK SHARP & DOHME LLC
  Company Number: TH-009507513-2297540

PATIENT
  Age: 46 Year
  Sex: Male

DRUGS (3)
  1. KEYTRUDA [Suspect]
     Active Substance: PEMBROLIZUMAB
     Indication: Colorectal cancer metastatic
     Dates: start: 20221031, end: 20241212
  2. PITAVASTATIN [Concomitant]
     Active Substance: PITAVASTATIN
  3. CARVEDILOL [Concomitant]
     Active Substance: CARVEDILOL

REACTIONS (9)
  - Cholangiocarcinoma [Unknown]
  - Therapy partial responder [Unknown]
  - Anastomotic ulcer [Unknown]
  - Colitis [Unknown]
  - Malignant neoplasm progression [Unknown]
  - Pancreaticobiliary carcinoma [Unknown]
  - Computerised tomogram thorax abnormal [Unknown]
  - Magnetic resonance imaging abnormal [Unknown]
  - Biliary dilatation [Unknown]

NARRATIVE: CASE EVENT DATE: 20230120
